FAERS Safety Report 14318373 (Version 1)
Quarter: 2017Q4

REPORT INFORMATION
  Report Type: Spontaneous
  Country: US (occurrence: US)
  Receive Date: 20171222
  Receipt Date: 20171222
  Transmission Date: 20180321
  Serious: No
  Sender: FDA-Public Use
  Company Number: US-GLAXOSMITHKLINE-US2017194482

PATIENT
  Age: 37 Year
  Sex: Female

DRUGS (2)
  1. HYDROCHLOROTHIAZIDE + TRIAMTERENE TABLET [Suspect]
     Active Substance: HYDROCHLOROTHIAZIDE\TRIAMTERENE
     Indication: HYPERTENSION
     Dosage: 1 DF, 1D
     Route: 048
  2. PROVENTIL [Concomitant]
     Active Substance: ALBUTEROL

REACTIONS (4)
  - Dizziness [Unknown]
  - Vomiting [Unknown]
  - Pruritus [Unknown]
  - Hallucination [Unknown]

NARRATIVE: CASE EVENT DATE: 2017
